FAERS Safety Report 4331394-3 (Version None)
Quarter: 2004Q1

REPORT INFORMATION
  Report Type: 
  Country: None (occurrence: None)
  Receive Date: 20040329
  Receipt Date: 20040315
  Transmission Date: 20041129
  Serious: Yes (Other)
  Sender: FDA-Public Use
  Company Number: US-JNJFOC-20031005929

PATIENT
  Age: 24 Year
  Sex: Female
  Weight: 63.05 kg

DRUGS (1)
  1. ORTHO TRI-CYCLEN [Suspect]
     Indication: METRORRHAGIA
     Dosage: 1 DOSE (S), 1 IN 1 DAY, ORAL
     Route: 048

REACTIONS (1)
  - ANAPHYLACTIC REACTION [None]
